FAERS Safety Report 10597771 (Version 1)
Quarter: 2014Q4

REPORT INFORMATION
  Report Type: Spontaneous
  Country: FR (occurrence: FR)
  Receive Date: 20141121
  Receipt Date: 20141121
  Transmission Date: 20150529
  Serious: Yes (Life-Threatening, Hospitalization)
  Sender: FDA-Public Use
  Company Number: FR-JNJFOC-20141108737

PATIENT
  Age: 78 Year
  Sex: Female

DRUGS (17)
  1. DUROGESIC [Suspect]
     Active Substance: FENTANYL
     Indication: PAIN
     Route: 062
     Dates: start: 20140319, end: 20140411
  2. XANAX [Concomitant]
     Active Substance: ALPRAZOLAM
     Route: 065
  3. SEROPLEX [Concomitant]
     Active Substance: ESCITALOPRAM OXALATE
     Route: 065
  4. ZYLORIC [Concomitant]
     Active Substance: ALLOPURINOL
     Route: 065
  5. KARDEGIC [Concomitant]
     Active Substance: ASPIRIN LYSINE
     Route: 065
  6. DUROGESIC [Suspect]
     Active Substance: FENTANYL
     Indication: OSTEOARTHRITIS
     Route: 062
     Dates: start: 20140319, end: 20140411
  7. DAFALGAN [Concomitant]
     Active Substance: ACETAMINOPHEN
     Route: 065
  8. AMLOR [Concomitant]
     Active Substance: AMLODIPINE BESYLATE
     Route: 065
  9. SULFARLEM [Concomitant]
     Active Substance: ANETHOLTRITHION
     Route: 065
  10. SPIRIVA [Concomitant]
     Active Substance: TIOTROPIUM BROMIDE MONOHYDRATE
     Route: 065
  11. DUROGESIC [Suspect]
     Active Substance: FENTANYL
     Indication: FRACTURE
     Route: 062
     Dates: start: 20140319, end: 20140411
  12. IMOVANE [Concomitant]
     Active Substance: ZOPICLONE
     Route: 065
  13. DISCOTRINE [Concomitant]
     Active Substance: NITROGLYCERIN
     Route: 065
  14. DUROGESIC [Suspect]
     Active Substance: FENTANYL
     Indication: FALL
     Route: 062
     Dates: start: 20140319, end: 20140411
  15. LAMALINE [Suspect]
     Active Substance: ACETAMINOPHEN\CAFFEINE\OPIUM
     Indication: PRODUCT USED FOR UNKNOWN INDICATION
     Route: 065
     Dates: end: 20140411
  16. MOPRAL [Concomitant]
     Active Substance: OMEPRAZOLE SODIUM
     Route: 065
  17. CRESTOR [Concomitant]
     Active Substance: ROSUVASTATIN CALCIUM
     Route: 065

REACTIONS (1)
  - Hypercapnic coma [Recovering/Resolving]

NARRATIVE: CASE EVENT DATE: 20140411
